FAERS Safety Report 10662582 (Version 1)
Quarter: 2014Q4

REPORT INFORMATION
  Report Type: Spontaneous
  Country: US (occurrence: None)
  Receive Date: 20141217
  Receipt Date: 20141217
  Transmission Date: 20150529
  Serious: No
  Sender: FDA-Public Use
  Company Number: None

PATIENT
  Age: 30 Year
  Sex: Female
  Weight: 124.74 kg

DRUGS (2)
  1. RISPERIDONE. [Suspect]
     Active Substance: RISPERIDONE
     Indication: BIPOLAR DISORDER
     Route: 048
     Dates: start: 20141119, end: 20141215
  2. RISPERIDONE. [Suspect]
     Active Substance: RISPERIDONE
     Indication: TACHYPHRENIA
     Route: 048
     Dates: start: 20141119, end: 20141215

REACTIONS (6)
  - Mood altered [None]
  - Dizziness [None]
  - Mental disorder [None]
  - Oropharyngeal pain [None]
  - Condition aggravated [None]
  - Breast discharge [None]

NARRATIVE: CASE EVENT DATE: 20141213
